FAERS Safety Report 11306907 (Version 2)
Quarter: 2018Q3

REPORT INFORMATION
  Report Type: Report from Study
  Country: CO (occurrence: CO)
  Receive Date: 20150723
  Receipt Date: 20180907
  Transmission Date: 20181010
  Serious: Yes (Hospitalization, Other)
  Sender: FDA-Public Use
  Company Number: CO-EMD SERONO-8035033

PATIENT
  Age: 15 Year
  Sex: Male

DRUGS (1)
  1. SAIZEN [Suspect]
     Active Substance: SOMATROPIN
     Indication: CHRONIC KIDNEY DISEASE
     Route: 058
     Dates: start: 20150522, end: 20150710

REACTIONS (4)
  - Renal disorder [Unknown]
  - Kidney transplant rejection [Unknown]
  - Acidosis [Unknown]
  - Infection [Unknown]

NARRATIVE: CASE EVENT DATE: 20150710
